FAERS Safety Report 15642274 (Version 2)
Quarter: 2018Q4

REPORT INFORMATION
  Report Type: Spontaneous
  Country: GB (occurrence: GB)
  Receive Date: 20181121
  Receipt Date: 20181204
  Transmission Date: 20190205
  Serious: Yes (Disabling)
  Sender: FDA-Public Use
  Company Number: GB-UNICHEM PHARMACEUTICALS (USA) INC-UCM201811-000312

PATIENT
  Age: 93 Year
  Sex: Female

DRUGS (4)
  1. DONEPEZIL. [Suspect]
     Active Substance: DONEPEZIL
  2. DONEPEZIL. [Suspect]
     Active Substance: DONEPEZIL
  3. CALCIUM [Concomitant]
     Active Substance: CALCIUM
  4. SODIUM DOCUSATE [Concomitant]
     Active Substance: DOCUSATE SODIUM

REACTIONS (2)
  - Myoclonus [Recovered/Resolved]
  - Immobile [Recovered/Resolved]
